FAERS Safety Report 4827403-5 (Version None)
Quarter: 2005Q4

REPORT INFORMATION
  Report Type: 
  Country: None (occurrence: None)
  Receive Date: 20051114
  Receipt Date: 20051108
  Transmission Date: 20060501
  Serious: Yes (Hospitalization, Disabling)
  Sender: FDA-Public Use
  Company Number: US-MERCK-0511USA01543

PATIENT
  Age: 70 Year
  Sex: Male
  Weight: 85 kg

DRUGS (5)
  1. VIOXX [Suspect]
     Indication: SPINAL COLUMN STENOSIS
     Route: 048
     Dates: start: 19990101, end: 20040901
  2. ALTACE [Concomitant]
     Route: 048
  3. LIPITOR [Concomitant]
     Route: 048
  4. NITROGLYCERIN [Concomitant]
     Route: 065
  5. ASPIRIN [Concomitant]
     Route: 048

REACTIONS (4)
  - BACK INJURY [None]
  - MYOCARDIAL INFARCTION [None]
  - ROAD TRAFFIC ACCIDENT [None]
  - VERTEBRAL INJURY [None]
